FAERS Safety Report 7133608-3 (Version None)
Quarter: 2010Q4

REPORT INFORMATION
  Report Type: 
  Country: None (occurrence: None)
  Receive Date: 20101202
  Receipt Date: 20101124
  Transmission Date: 20110411
  Serious: Yes (Hospitalization, Other)
  Sender: FDA-Public Use
  Company Number: JP-MERCK-1010USA02803

PATIENT
  Age: 88 Year
  Sex: Female

DRUGS (3)
  1. FOSAMAX [Suspect]
     Route: 048
  2. RISEDRONATE SODIUM [Suspect]
     Route: 048
  3. PREDNISOLONE [Concomitant]
     Indication: GLOMERULONEPHRITIS
     Route: 048
     Dates: start: 20040101

REACTIONS (1)
  - FEMUR FRACTURE [None]
